FAERS Safety Report 6260549-6 (Version None)
Quarter: 2009Q3

REPORT INFORMATION
  Report Type: 
  Country: None (occurrence: None)
  Receive Date: 20090708
  Receipt Date: 20090701
  Transmission Date: 20100115
  Serious: Yes (Hospitalization)
  Sender: FDA-Public Use
  Company Number: PHHO2009CN07266

PATIENT
  Sex: Female
  Weight: 55 kg

DRUGS (1)
  1. RAD 666 RAD+TAB [Suspect]
     Indication: NON-SMALL CELL LUNG CANCER
     Dosage: 5 MG, QD
     Route: 048
     Dates: start: 20090311, end: 20090701

REACTIONS (4)
  - HEMIPLEGIA [None]
  - INFARCTION [None]
  - METASTASIS [None]
  - THROMBOCYTOPENIA [None]
